FAERS Safety Report 24039543 (Version 1)
Quarter: 2024Q3

REPORT INFORMATION
  Report Type: Report from Study
  Country: DE (occurrence: DE)
  Receive Date: 20240702
  Receipt Date: 20240702
  Transmission Date: 20241017
  Serious: Yes (Other)
  Sender: ROCHE
  Company Number: DE-ROCHE-10000008519

PATIENT

DRUGS (6)
  1. VEMURAFENIB [Suspect]
     Active Substance: VEMURAFENIB
     Indication: Malignant melanoma
     Route: 065
  2. COBIMETINIB [Suspect]
     Active Substance: COBIMETINIB
     Indication: Malignant melanoma
     Route: 065
  3. DABRAFENIB [Suspect]
     Active Substance: DABRAFENIB
     Indication: Malignant melanoma
     Route: 065
  4. TRAMETINIB [Suspect]
     Active Substance: TRAMETINIB
     Indication: Malignant melanoma
     Route: 065
  5. ENCORAFENIB [Suspect]
     Active Substance: ENCORAFENIB
     Indication: Malignant melanoma
     Route: 065
  6. BINIMETINIB [Suspect]
     Active Substance: BINIMETINIB
     Indication: Malignant melanoma
     Route: 065

REACTIONS (38)
  - Mucosal inflammation [Unknown]
  - Nausea [Unknown]
  - Pyrexia [Unknown]
  - Fatigue [Unknown]
  - Chills [Unknown]
  - Diarrhoea [Unknown]
  - Decreased appetite [Unknown]
  - Gingival pain [Unknown]
  - Rash pustular [Unknown]
  - Constipation [Unknown]
  - Keratoacanthoma [Unknown]
  - Abdominal pain upper [Unknown]
  - Alanine aminotransferase increased [Unknown]
  - Rash maculo-papular [Unknown]
  - Aspartate aminotransferase increased [Unknown]
  - Arthralgia [Unknown]
  - Flatulence [Unknown]
  - Vomiting [Unknown]
  - Palmar-plantar erythrodysaesthesia syndrome [Unknown]
  - Retinopathy [Unknown]
  - Intra-abdominal haemorrhage [Unknown]
  - Electrocardiogram QT prolonged [Unknown]
  - Vaginal haemorrhage [Unknown]
  - Photophobia [Unknown]
  - Conjunctivitis [Unknown]
  - Photosensitivity reaction [Unknown]
  - Urticaria [Unknown]
  - Libido decreased [Unknown]
  - Dizziness [Unknown]
  - Influenza like illness [Unknown]
  - Headache [Unknown]
  - Weight decreased [Unknown]
  - Peripheral sensory neuropathy [Unknown]
  - Erectile dysfunction [Unknown]
  - Dysgeusia [Unknown]
  - Sarcoidosis [Unknown]
  - Myalgia [Unknown]
  - Lacrimation increased [Unknown]
